FAERS Safety Report 7985483-2 (Version None)
Quarter: 2011Q4

REPORT INFORMATION
  Report Type: 
  Country: None (occurrence: None)
  Receive Date: 20111216
  Receipt Date: 20111212
  Transmission Date: 20120403
  Serious: Yes (Death, Life-Threatening, Hospitalization)
  Sender: FDA-Public Use
  Company Number: US-SANOFI-AVENTIS-2011SA081169

PATIENT
  Age: 46 Year
  Sex: Female
  Weight: 69.3 kg

DRUGS (18)
  1. MORPHINE SULFATE [Concomitant]
  2. BLINDED THERAPY [Suspect]
     Route: 065
     Dates: end: 20111114
  3. AMLODIPINE [Concomitant]
  4. OMEPRAZOLE [Concomitant]
  5. VITAMIN B COMPLEX CAP [Concomitant]
  6. DOCUSATE SODIUM [Concomitant]
  7. THIAMINE HCL [Concomitant]
  8. LACTULOSE [Concomitant]
  9. BLINDED THERAPY [Suspect]
     Indication: BREAST CANCER
     Route: 042
     Dates: start: 20110808, end: 20111010
  10. BLINDED THERAPY [Suspect]
     Route: 042
     Dates: end: 20111031
  11. DOCETAXEL [Suspect]
     Indication: BREAST CANCER
     Route: 042
     Dates: start: 20110813, end: 20111010
  12. DOCETAXEL [Suspect]
     Route: 042
     Dates: end: 20111107
  13. DOCETAXEL [Suspect]
     Route: 042
     Dates: end: 20111114
  14. PYRIDOXINE HCL [Concomitant]
  15. SCOPOLAMINE [Concomitant]
  16. DOCETAXEL [Suspect]
     Route: 042
     Dates: start: 20110808
  17. DOCETAXEL [Suspect]
     Route: 042
     Dates: end: 20111031
  18. CYCLIZINE [Concomitant]

REACTIONS (3)
  - THROMBOCYTOPENIA [None]
  - HEPATIC FAILURE [None]
  - RENAL IMPAIRMENT [None]
